FAERS Safety Report 6790027-7 (Version None)
Quarter: 2010Q2

REPORT INFORMATION
  Report Type: 
  Country: None (occurrence: None)
  Receive Date: 20100624
  Receipt Date: 20100613
  Transmission Date: 20101027
  Serious: Yes (Hospitalization)
  Sender: FDA-Public Use
  Company Number: CA-ELI_LILLY_AND_COMPANY-CA201006004077

PATIENT
  Age: 86 Year
  Sex: Female

DRUGS (9)
  1. FORTEO [Suspect]
     Indication: OSTEOPOROSIS
     Dosage: 20 UG, DAILY (1/D)
     Dates: start: 20080829
  2. RHOTRAL [Concomitant]
  3. NORVASC [Concomitant]
  4. APO-TRIAZIDE [Concomitant]
  5. CARBOCAL [Concomitant]
  6. SYNTHROID [Concomitant]
  7. NOVOQUININE [Concomitant]
  8. LORAZEPAM [Concomitant]
  9. LECITHIN [Concomitant]

REACTIONS (1)
  - PYELONEPHRITIS [None]
